FAERS Safety Report 25468921 (Version 1)
Quarter: 2025Q2

REPORT INFORMATION
  Report Type: Spontaneous
  Country: US (occurrence: US)
  Receive Date: 20250623
  Receipt Date: 20250623
  Transmission Date: 20250716
  Serious: No
  Sender: PADAGIS
  Company Number: US-PADAGIS-2025PAD00741

PATIENT

DRUGS (2)
  1. PERMETHRIN [Suspect]
     Active Substance: PERMETHRIN
     Indication: Bed bug infestation
     Route: 061
     Dates: start: 202504
  2. PERMETHRIN [Suspect]
     Active Substance: PERMETHRIN
     Indication: Flea infestation

REACTIONS (6)
  - Protein urine [Unknown]
  - Hypoaesthesia [Unknown]
  - Paraesthesia [Unknown]
  - Condition aggravated [Unknown]
  - Drug ineffective for unapproved indication [Unknown]
  - Product use issue [Unknown]
